FAERS Safety Report 8606615-9 (Version None)
Quarter: 2012Q3

REPORT INFORMATION
  Report Type: 
  Country: None (occurrence: None)
  Receive Date: 20120820
  Receipt Date: 20120810
  Transmission Date: 20120928
  Serious: Yes (Disabling, Other)
  Sender: FDA-Public Use
  Company Number: US-MILLENNIUM PHARMACEUTICALS, INC.-2012-05242

PATIENT
  Age: 17 Year
  Sex: Female
  Weight: 42.7 kg

DRUGS (5)
  1. ETOPOSIDE [Suspect]
     Indication: ACUTE MYELOID LEUKAEMIA
     Dosage: 100 MG/M2, CYCLIC
     Dates: start: 20120609, end: 20120714
  2. DAUNORUBICIN HCL [Suspect]
     Indication: ACUTE MYELOID LEUKAEMIA
     Dosage: UNK
  3. CYTARABINE [Suspect]
     Indication: ACUTE MYELOID LEUKAEMIA
     Dosage: 100 MG/M2, CYCLIC
     Dates: start: 20120609, end: 20120717
  4. VELCADE [Suspect]
     Indication: ACUTE MYELOID LEUKAEMIA
     Dosage: 1.3 MG/M2, CYCLIC
     Dates: start: 20120609, end: 20120717
  5. DOXORUBICIN HYDROCHLORIDE [Suspect]
     Dosage: 50 MG/M2, CYCLIC
     Dates: start: 20120609, end: 20120714

REACTIONS (5)
  - SKIN EXFOLIATION [None]
  - PAIN OF SKIN [None]
  - ORAL PAIN [None]
  - FLUSHING [None]
  - PERIPHERAL SENSORY NEUROPATHY [None]
